FAERS Safety Report 23851623 (Version 1)
Quarter: 2024Q2

REPORT INFORMATION
  Report Type: Spontaneous
  Country: US (occurrence: US)
  Receive Date: 20240514
  Receipt Date: 20240514
  Transmission Date: 20240715
  Serious: No
  Sender: FDA-Public Use
  Company Number: US-AJANTA-2023AJA00252

PATIENT
  Age: 67 Year
  Sex: Female
  Weight: 170 kg

DRUGS (2)
  1. CHOLESTYRAMINE [Suspect]
     Active Substance: CHOLESTYRAMINE
     Indication: Diarrhoea
     Dosage: 04 OUNCES
     Route: 048
     Dates: start: 20231028
  2. CHOLESTYRAMINE [Suspect]
     Active Substance: CHOLESTYRAMINE
     Indication: Gallbladder disorder

REACTIONS (2)
  - Product taste abnormal [Unknown]
  - Product use in unapproved indication [Unknown]

NARRATIVE: CASE EVENT DATE: 20230101
